FAERS Safety Report 6712186-4 (Version None)
Quarter: 2010Q2

REPORT INFORMATION
  Report Type: 
  Country: None (occurrence: None)
  Receive Date: 20100505
  Receipt Date: 20100422
  Transmission Date: 20101027
  Serious: Yes (Other)
  Sender: FDA-Public Use
  Company Number: PHHY2010US26213

PATIENT
  Sex: Male
  Weight: 85.714 kg

DRUGS (3)
  1. ZOMETA [Suspect]
     Indication: METASTASES TO PROSTATE
     Dosage: 04 MG, 04 WKS
     Route: 042
     Dates: start: 20070404, end: 20100217
  2. LUPROX [Concomitant]
  3. TAXOTERE [Concomitant]

REACTIONS (1)
  - OSTEONECROSIS OF JAW [None]
